FAERS Safety Report 4302764-4 (Version None)
Quarter: 2004Q1

REPORT INFORMATION
  Report Type: 
  Country: None (occurrence: None)
  Receive Date: 20040224
  Receipt Date: 20030818
  Transmission Date: 20041129
  Serious: No
  Sender: FDA-Public Use
  Company Number: US-BRISTOL-MYERS SQUIBB COMPANY-12357646

PATIENT
  Age: 38 Year
  Sex: Female
  Weight: 46 kg

DRUGS (1)
  1. KENALOG-10 [Suspect]
     Indication: SEASONAL ALLERGY
     Dosage: INJECTION DONE YEARLY X 6-7 YEARS.  LAST INJECTION MAY, 2003.
     Route: 051

REACTIONS (2)
  - HAIR GROWTH ABNORMAL [None]
  - POLYMENORRHOEA [None]
